FAERS Safety Report 10208513 (Version 1)
Quarter: 2014Q2

REPORT INFORMATION
  Report Type: Report from Study
  Country: US (occurrence: US)
  Receive Date: 20140530
  Receipt Date: 20140530
  Transmission Date: 20141212
  Serious: Yes (Hospitalization, Other)
  Sender: FDA-Public Use
  Company Number: US-ASTRAZENECA-2014SE36131

PATIENT
  Age: 65 Year
  Sex: Male
  Weight: 86.2 kg

DRUGS (9)
  1. NEXIUM [Suspect]
     Indication: GASTROOESOPHAGEAL REFLUX DISEASE
     Route: 048
     Dates: start: 2004
  2. NEXIUM [Suspect]
     Indication: HIATUS HERNIA
     Route: 048
     Dates: start: 2004
  3. OMEPRAZOLE [Suspect]
     Indication: ULCER
     Dosage: DAILY
     Route: 048
     Dates: start: 201402
  4. PRISTIQ [Concomitant]
     Indication: DEPRESSION
     Route: 048
     Dates: start: 2013
  5. SYNTHROID [Concomitant]
     Indication: PARATHYROIDECTOMY
     Route: 048
     Dates: start: 2004
  6. LOVASTATIN [Concomitant]
     Indication: BLOOD CHOLESTEROL ABNORMAL
     Route: 048
  7. TAMSULOSIN [Concomitant]
     Indication: DYSURIA
     Route: 048
  8. BUPROPION XL [Concomitant]
     Indication: DEPRESSION
     Route: 048
     Dates: start: 2013
  9. SUCRALFATE [Concomitant]
     Dates: start: 201402

REACTIONS (4)
  - Dizziness [Unknown]
  - Syncope [Unknown]
  - Lymphoplasmacytoid lymphoma/immunocytoma [Unknown]
  - Ulcer [Unknown]
